FAERS Safety Report 8877522 (Version 3)
Quarter: 2013Q2

REPORT INFORMATION
  Report Type: Spontaneous
  Country: US (occurrence: US)
  Receive Date: 20121024
  Receipt Date: 20130401
  Transmission Date: 20140414
  Serious: Yes (Hospitalization, Other)
  Sender: FDA-Public Use
  Company Number: US-BAYER-2012-109486

PATIENT
  Age: 19 Year
  Sex: Female

DRUGS (10)
  1. GIANVI [Suspect]
  2. YAZ [Suspect]
  3. YASMIN [Suspect]
  4. INDERAL LA [Concomitant]
  5. TYLENOL [Concomitant]
  6. IBU [Concomitant]
     Dosage: 200 MG, UNK
  7. ZYRTEC [Concomitant]
  8. IBUPROFEN [Concomitant]
  9. PROPRANOLOL RETARD [Concomitant]
     Dosage: UNK
     Dates: start: 20101126
  10. PROPRANOLOL RETARD [Concomitant]
     Dosage: UNK
     Dates: start: 20101220

REACTIONS (6)
  - Pulmonary embolism [None]
  - Cholecystitis chronic [None]
  - Pain [None]
  - Injury [None]
  - Pain [None]
  - Pulmonary embolism [None]
